FAERS Safety Report 23694577 (Version 1)
Quarter: 2024Q2

REPORT INFORMATION
  Report Type: Spontaneous
  Country: US (occurrence: US)
  Receive Date: 20240402
  Receipt Date: 20240402
  Transmission Date: 20240715
  Serious: Yes (Hospitalization)
  Sender: FDA-Public Use
  Company Number: US-AVET LIFESCIENCES LTD-2024-AVET-000090

PATIENT
  Sex: Male

DRUGS (1)
  1. OCTREOTIDE [Suspect]
     Active Substance: OCTREOTIDE\OCTREOTIDE ACETATE
     Indication: Lymphatic fistula
     Dosage: 100 MILLIGRAM, 3 DOSE PER 1 D
     Route: 058

REACTIONS (2)
  - Hypocalcaemia [Recovering/Resolving]
  - Off label use [Unknown]
